FAERS Safety Report 6749364-4 (Version None)
Quarter: 2010Q2

REPORT INFORMATION
  Report Type: 
  Country: None (occurrence: None)
  Receive Date: 20100601
  Receipt Date: 20100521
  Transmission Date: 20101027
  Serious: Yes (Death)
  Sender: FDA-Public Use
  Company Number: US-ROCHE-703041

PATIENT
  Sex: Male
  Weight: 59 kg

DRUGS (14)
  1. BEVACIZUMAB [Suspect]
     Indication: GASTRIC CANCER
     Route: 042
     Dates: start: 20100302, end: 20100329
  2. CAPECITABINE [Suspect]
     Route: 048
     Dates: start: 20100302, end: 20100405
  3. LOVENOX [Concomitant]
     Route: 058
     Dates: end: 20100406
  4. GLIPIZIDE [Concomitant]
     Route: 048
     Dates: end: 20100406
  5. ALTACE [Concomitant]
     Indication: HYPERTENSION
     Route: 048
     Dates: end: 20100406
  6. PROTONIX [Concomitant]
     Indication: DEPRESSION
     Route: 048
     Dates: end: 20100406
  7. REGLAN [Concomitant]
     Route: 048
     Dates: end: 20100406
  8. ATIVAN [Concomitant]
     Indication: ANXIETY
     Dosage: AS NEEDED
     Route: 048
     Dates: end: 20100406
  9. LEXAPRO [Concomitant]
     Route: 048
  10. NORCO [Concomitant]
     Indication: PAIN
     Dosage: 10/325 AS NEEDED FOR PAIN.
  11. METFORMIN HCL [Concomitant]
     Route: 048
     Dates: end: 20100406
  12. ZETIA [Concomitant]
     Route: 048
  13. ADVICOR [Concomitant]
     Dosage: 1000/20 DAILY.
     Route: 048
  14. MORPHINE SULFATE [Concomitant]
     Indication: PAIN

REACTIONS (1)
  - HAEMORRHAGE INTRACRANIAL [None]
